FAERS Safety Report 4995479-0 (Version None)
Quarter: 2006Q2

REPORT INFORMATION
  Report Type: 
  Country: None (occurrence: None)
  Receive Date: 20060504
  Receipt Date: 20060419
  Transmission Date: 20061013
  Serious: Yes (Hospitalization)
  Sender: FDA-Public Use
  Company Number: 2006-141453-NL

PATIENT
  Age: 38 Year
  Sex: Female
  Weight: 62.6 kg

DRUGS (1)
  1. NUVARING [Suspect]
     Indication: CONTRACEPTION
     Dosage: VAGINAL, 21 DAYS IN, 7 DAYS OUT
     Route: 067
     Dates: start: 20060227

REACTIONS (9)
  - APPENDICITIS [None]
  - DIARRHOEA [None]
  - DRUG INEFFECTIVE [None]
  - FATIGUE [None]
  - MIGRAINE [None]
  - NAUSEA [None]
  - OVARIAN CYST [None]
  - OVULATION PAIN [None]
  - URINARY TRACT INFECTION [None]
